FAERS Safety Report 25688047 (Version 2)
Quarter: 2025Q4

REPORT INFORMATION
  Report Type: Spontaneous
  Country: CA (occurrence: CA)
  Receive Date: 20250817
  Receipt Date: 20251016
  Transmission Date: 20260117
  Serious: Yes (Death, Other)
  Sender: BRISTOL-MYERS SQUIBB COMPANY
  Company Number: CA-BRISTOL-MYERS SQUIBB COMPANY-2025-113312

PATIENT
  Age: 43 Year
  Sex: Female
  Weight: 70 kg

DRUGS (425)
  1. ORENCIA [Suspect]
     Active Substance: ABATACEPT
     Indication: Rheumatoid arthritis
  2. TRIAMCINOLONE ACETONIDE [Suspect]
     Active Substance: TRIAMCINOLONE ACETONIDE
     Indication: Rheumatoid arthritis
  3. TRIAMCINOLONE ACETONIDE [Suspect]
     Active Substance: TRIAMCINOLONE ACETONIDE
  4. TRIAMCINOLONE ACETONIDE [Suspect]
     Active Substance: TRIAMCINOLONE ACETONIDE
     Dosage: SUBDERMAL
  5. TRIAMCINOLONE ACETONIDE [Suspect]
     Active Substance: TRIAMCINOLONE ACETONIDE
  6. TRIAMCINOLONE ACETONIDE [Suspect]
     Active Substance: TRIAMCINOLONE ACETONIDE
  7. HYDROCORTISONE [Concomitant]
     Active Substance: HYDROCORTISONE
     Indication: Rheumatoid arthritis
  8. HYDROCORTISONE [Concomitant]
     Active Substance: HYDROCORTISONE
     Dosage: SUBDERMAL
  9. HYDROCORTISONE [Concomitant]
     Active Substance: HYDROCORTISONE
  10. HYDROCORTISONE [Concomitant]
     Active Substance: HYDROCORTISONE
  11. ALENDRONATE SODIUM\CHOLECALCIFEROL [Concomitant]
     Active Substance: ALENDRONATE SODIUM\CHOLECALCIFEROL
     Indication: Rheumatoid arthritis
  12. ACETAMINOPHEN [Concomitant]
     Active Substance: ACETAMINOPHEN
     Indication: Rheumatoid arthritis
  13. ACETAMINOPHEN\OXYCODONE HYDROCHLORIDE [Concomitant]
     Active Substance: ACETAMINOPHEN\OXYCODONE HYDROCHLORIDE
     Indication: Product used for unknown indication
  14. ACTEMRA [Concomitant]
     Active Substance: TOCILIZUMAB
     Indication: Rheumatoid arthritis
  15. ACTEMRA [Concomitant]
     Active Substance: TOCILIZUMAB
     Indication: Psoriatic arthropathy
  16. ACTEMRA [Concomitant]
     Active Substance: TOCILIZUMAB
     Indication: Colitis ulcerative
  17. AIMOVIG [Concomitant]
     Active Substance: ERENUMAB-AOOE
     Indication: Migraine
     Dosage: SUBDERMAL
  18. ALENDRONIC ACID [Concomitant]
     Active Substance: ALENDRONIC ACID
     Indication: Rheumatoid arthritis
  19. ALENDRONIC ACID [Concomitant]
     Active Substance: ALENDRONIC ACID
  20. ALENDRONIC ACID [Concomitant]
     Active Substance: ALENDRONIC ACID
  21. ALENDRONIC ACID [Concomitant]
     Active Substance: ALENDRONIC ACID
  22. ALENDRONIC ACID [Concomitant]
     Active Substance: ALENDRONIC ACID
     Dosage: SUDERMAL
  23. ALENDRONIC ACID [Concomitant]
     Active Substance: ALENDRONIC ACID
  24. PANTOPRAZOLE SODIUM ANHYDROUS [Concomitant]
     Active Substance: PANTOPRAZOLE SODIUM ANHYDROUS
     Indication: Product used for unknown indication
  25. PANTOPRAZOLE SODIUM ANHYDROUS [Concomitant]
     Active Substance: PANTOPRAZOLE SODIUM ANHYDROUS
  26. PANTOPRAZOLE SODIUM ANHYDROUS [Concomitant]
     Active Substance: PANTOPRAZOLE SODIUM ANHYDROUS
  27. PREDNISONE [Concomitant]
     Active Substance: PREDNISONE
     Indication: Rheumatoid arthritis
  28. ARAVA [Concomitant]
     Active Substance: LEFLUNOMIDE
     Indication: Rheumatoid arthritis
  29. ARAVA [Concomitant]
     Active Substance: LEFLUNOMIDE
     Indication: Condition aggravated
  30. ASACOL [Concomitant]
     Active Substance: MESALAMINE
     Indication: Product used for unknown indication
  31. BORAGE OIL [Concomitant]
     Active Substance: BORAGE OIL
     Indication: Rheumatoid arthritis
  32. CAFFEINE CITRATE [Concomitant]
     Active Substance: CAFFEINE CITRATE
     Indication: Rheumatoid arthritis
  33. CALCIUM [Concomitant]
     Active Substance: CALCIUM
     Indication: Product used for unknown indication
  34. CALCIUM GLUBIONATE [Concomitant]
     Active Substance: CALCIUM GLUBIONATE
     Indication: Product used for unknown indication
  35. CALCIUM GLUBIONATE [Concomitant]
     Active Substance: CALCIUM GLUBIONATE
  36. CALCIUM\VITAMIN D [Concomitant]
     Active Substance: CALCIUM\VITAMIN D
     Indication: Product used for unknown indication
  37. CALCIUM\VITAMIN D [Concomitant]
     Active Substance: CALCIUM\VITAMIN D
  38. CELEBREX [Concomitant]
     Active Substance: CELECOXIB
     Indication: Rheumatoid arthritis
  39. CELEBREX [Concomitant]
     Active Substance: CELECOXIB
     Indication: Off label use
  40. CELEBREX [Concomitant]
     Active Substance: CELECOXIB
     Indication: Arthritis
  41. CELEBREX [Concomitant]
     Active Substance: CELECOXIB
  42. CELEBREX [Concomitant]
     Active Substance: CELECOXIB
  43. CELEBREX [Concomitant]
     Active Substance: CELECOXIB
  44. CELEBREX [Concomitant]
     Active Substance: CELECOXIB
  45. CELEBREX [Concomitant]
     Active Substance: CELECOXIB
  46. CELEBREX [Concomitant]
     Active Substance: CELECOXIB
  47. CELEBREX [Concomitant]
     Active Substance: CELECOXIB
  48. CELEBREX [Concomitant]
     Active Substance: CELECOXIB
  49. CELEBREX [Concomitant]
     Active Substance: CELECOXIB
  50. CELEBREX [Concomitant]
     Active Substance: CELECOXIB
  51. CELEBREX [Concomitant]
     Active Substance: CELECOXIB
  52. CELEBREX [Concomitant]
     Active Substance: CELECOXIB
  53. CELEBREX [Concomitant]
     Active Substance: CELECOXIB
  54. CELEBREX [Concomitant]
     Active Substance: CELECOXIB
  55. CELEBREX [Concomitant]
     Active Substance: CELECOXIB
  56. CELECOXIB [Concomitant]
     Active Substance: CELECOXIB
     Indication: Rheumatoid arthritis
  57. CELECOXIB [Concomitant]
     Active Substance: CELECOXIB
     Indication: Off label use
  58. CELECOXIB [Concomitant]
     Active Substance: CELECOXIB
     Indication: Arthritis
  59. CELECOXIB [Concomitant]
     Active Substance: CELECOXIB
  60. CELECOXIB [Concomitant]
     Active Substance: CELECOXIB
  61. CELECOXIB [Concomitant]
     Active Substance: CELECOXIB
  62. CELECOXIB [Concomitant]
     Active Substance: CELECOXIB
  63. CELECOXIB [Concomitant]
     Active Substance: CELECOXIB
  64. CELECOXIB [Concomitant]
     Active Substance: CELECOXIB
  65. CELECOXIB [Concomitant]
     Active Substance: CELECOXIB
  66. CELECOXIB [Concomitant]
     Active Substance: CELECOXIB
  67. CELECOXIB [Concomitant]
     Active Substance: CELECOXIB
  68. CELECOXIB [Concomitant]
     Active Substance: CELECOXIB
  69. CELECOXIB [Concomitant]
     Active Substance: CELECOXIB
  70. CERTOLIZUMAB PEGOL [Concomitant]
     Active Substance: CERTOLIZUMAB PEGOL
     Indication: Rheumatoid arthritis
     Dosage: SUBDERMAL
  71. CERTOLIZUMAB PEGOL [Concomitant]
     Active Substance: CERTOLIZUMAB PEGOL
     Dosage: SUBDERMAL
  72. CETIRIZINE [Concomitant]
     Active Substance: CETIRIZINE HYDROCHLORIDE
     Indication: Rheumatoid arthritis
  73. CETIRIZINE [Concomitant]
     Active Substance: CETIRIZINE HYDROCHLORIDE
     Indication: Off label use
  74. CETIRIZINE [Concomitant]
     Active Substance: CETIRIZINE HYDROCHLORIDE
  75. CETIRIZINE [Concomitant]
     Active Substance: CETIRIZINE HYDROCHLORIDE
  76. CETIRIZINE [Concomitant]
     Active Substance: CETIRIZINE HYDROCHLORIDE
  77. CETIRIZINE [Concomitant]
     Active Substance: CETIRIZINE HYDROCHLORIDE
  78. CETIRIZINE [Concomitant]
     Active Substance: CETIRIZINE HYDROCHLORIDE
  79. CETIRIZINE [Concomitant]
     Active Substance: CETIRIZINE HYDROCHLORIDE
  80. CETIRIZINE [Concomitant]
     Active Substance: CETIRIZINE HYDROCHLORIDE
  81. CETIRIZINE HYDROCHLORIDE [Concomitant]
     Active Substance: CETIRIZINE HYDROCHLORIDE
     Indication: Rheumatoid arthritis
  82. CETIRIZINE HYDROCHLORIDE [Concomitant]
     Active Substance: CETIRIZINE HYDROCHLORIDE
  83. CETIRIZINE HYDROCHLORIDE [Concomitant]
     Active Substance: CETIRIZINE HYDROCHLORIDE
  84. CETIRIZINE HYDROCHLORIDE [Concomitant]
     Active Substance: CETIRIZINE HYDROCHLORIDE
  85. CETIRIZINE HYDROCHLORIDE [Concomitant]
     Active Substance: CETIRIZINE HYDROCHLORIDE
  86. CETIRIZINE HYDROCHLORIDE AND PSEUDOEPHEDRINE HYDROCHLORIDE [Concomitant]
     Active Substance: CETIRIZINE HYDROCHLORIDE\PSEUDOEPHEDRINE HYDROCHLORIDE
     Indication: Rheumatoid arthritis
  87. CETIRIZINE HYDROCHLORIDE AND PSEUDOEPHEDRINE HYDROCHLORIDE [Concomitant]
     Active Substance: CETIRIZINE HYDROCHLORIDE\PSEUDOEPHEDRINE HYDROCHLORIDE
  88. CETRIMIDE [Concomitant]
     Active Substance: CETRIMIDE
     Indication: Rheumatoid arthritis
  89. CHLORAPREP [Concomitant]
     Active Substance: CHLORHEXIDINE GLUCONATE\ISOPROPYL ALCOHOL
     Indication: Rheumatoid arthritis
  90. CHLORHEXIDINE [Concomitant]
     Active Substance: CHLORHEXIDINE
     Indication: Rheumatoid arthritis
  91. CHLORHEXIDINE GLUCONATE\ISOPROPYL ALCOHOL [Concomitant]
     Active Substance: CHLORHEXIDINE GLUCONATE\ISOPROPYL ALCOHOL
     Indication: Product used for unknown indication
  92. CHLORHEXIDINE GLUCONATE\ISOPROPYL ALCOHOL [Concomitant]
     Active Substance: CHLORHEXIDINE GLUCONATE\ISOPROPYL ALCOHOL
  93. CHLORHEXIDINE GLUCONATE\ISOPROPYL ALCOHOL [Concomitant]
     Active Substance: CHLORHEXIDINE GLUCONATE\ISOPROPYL ALCOHOL
  94. CIMZIA [Concomitant]
     Active Substance: CERTOLIZUMAB PEGOL
     Indication: Rheumatoid arthritis
  95. CORTISONE (HYDROCORTISONE) [Concomitant]
     Active Substance: HYDROCORTISONE
     Indication: Rheumatoid arthritis
  96. CORTISONE (HYDROCORTISONE) [Concomitant]
     Active Substance: HYDROCORTISONE
  97. CORTISONE (HYDROCORTISONE) [Concomitant]
     Active Substance: HYDROCORTISONE
  98. CORTISONE (HYDROCORTISONE) [Concomitant]
     Active Substance: HYDROCORTISONE
     Dosage: SUBDERMAL
  99. CORTISONE (HYDROCORTISONE) [Concomitant]
     Active Substance: HYDROCORTISONE
  100. CORTISONE ACETATE [Concomitant]
     Active Substance: CORTISONE ACETATE
     Indication: Rheumatoid arthritis
  101. CORTISONE ACETATE [Concomitant]
     Active Substance: CORTISONE ACETATE
  102. CORTISONE ACETATE [Concomitant]
     Active Substance: CORTISONE ACETATE
  103. CORTISONE ACETATE [Concomitant]
     Active Substance: CORTISONE ACETATE
  104. CORTISONE ACETATE [Concomitant]
     Active Substance: CORTISONE ACETATE
  105. COSENTYX [Concomitant]
     Active Substance: SECUKINUMAB
     Indication: Rheumatoid arthritis
  106. COSENTYX [Concomitant]
     Active Substance: SECUKINUMAB
     Indication: Psoriatic arthropathy
  107. DESOXIMETASONE [Concomitant]
     Active Substance: DESOXIMETASONE
     Indication: Rheumatoid arthritis
     Dosage: SUBDERMAL
  108. DESOXIMETASONE [Concomitant]
     Active Substance: DESOXIMETASONE
  109. DESOXIMETASONE [Concomitant]
     Active Substance: DESOXIMETASONE
  110. DESOXIMETASONE [Concomitant]
     Active Substance: DESOXIMETASONE
  111. DESOXIMETASONE [Concomitant]
     Active Substance: DESOXIMETASONE
  112. DESOXIMETASONE [Concomitant]
     Active Substance: DESOXIMETASONE
  113. DESOXIMETASONE [Concomitant]
     Active Substance: DESOXIMETASONE
  114. DESOXIMETASONE [Concomitant]
     Active Substance: DESOXIMETASONE
  115. DESOXIMETASONE [Concomitant]
     Active Substance: DESOXIMETASONE
  116. DESOXIMETASONE [Concomitant]
     Active Substance: DESOXIMETASONE
     Dosage: SUBDERMAL
  117. DESOXIMETASONE [Concomitant]
     Active Substance: DESOXIMETASONE
  118. DESOXIMETASONE [Concomitant]
     Active Substance: DESOXIMETASONE
  119. DESOXIMETASONE [Concomitant]
     Active Substance: DESOXIMETASONE
  120. DESOXIMETASONE [Concomitant]
     Active Substance: DESOXIMETASONE
  121. DESOXIMETASONE [Concomitant]
     Active Substance: DESOXIMETASONE
  122. DESOXIMETASONE [Concomitant]
     Active Substance: DESOXIMETASONE
  123. DESOXIMETASONE [Concomitant]
     Active Substance: DESOXIMETASONE
     Dosage: SUBDERMAL
  124. DESOXIMETASONE [Concomitant]
     Active Substance: DESOXIMETASONE
  125. DESOXIMETASONE [Concomitant]
     Active Substance: DESOXIMETASONE
  126. DESOXIMETASONE [Concomitant]
     Active Substance: DESOXIMETASONE
  127. DESOXIMETASONE [Concomitant]
     Active Substance: DESOXIMETASONE
     Dosage: SUBDERMAL
  128. DICLOFENAC [Concomitant]
     Active Substance: DICLOFENAC
     Indication: Product used for unknown indication
  129. DICLOFENAC [Concomitant]
     Active Substance: DICLOFENAC
  130. DICLOFENAC POTASSIUM [Concomitant]
     Active Substance: DICLOFENAC POTASSIUM
     Indication: Product used for unknown indication
  131. DICLOFENAC POTASSIUM [Concomitant]
     Active Substance: DICLOFENAC POTASSIUM
  132. DOXYCYCLINE HYCLATE [Concomitant]
     Active Substance: DOXYCYCLINE HYCLATE
     Indication: Rheumatoid arthritis
  133. DOXYCYCLINE HYCLATE [Concomitant]
     Active Substance: DOXYCYCLINE HYCLATE
  134. DOXYCYCLINE HYCLATE [Concomitant]
     Active Substance: DOXYCYCLINE HYCLATE
     Dosage: SUBDERMAL
  135. ENBREL [Concomitant]
     Active Substance: ETANERCEPT
     Indication: Rheumatoid arthritis
  136. ERELZI [Concomitant]
     Active Substance: ETANERCEPT-SZZS
     Indication: Rheumatoid arthritis
     Dosage: SUBDERMAL
  137. ERELZI [Concomitant]
     Active Substance: ETANERCEPT-SZZS
  138. ERELZI [Concomitant]
     Active Substance: ETANERCEPT-SZZS
  139. ERELZI [Concomitant]
     Active Substance: ETANERCEPT-SZZS
  140. FLUMETHASONE PIVALATE [Concomitant]
     Active Substance: FLUMETHASONE PIVALATE
     Indication: Rheumatoid arthritis
  141. FOLIC ACID [Concomitant]
     Active Substance: FOLIC ACID
     Indication: Rheumatoid arthritis
  142. FOLIC ACID [Concomitant]
     Active Substance: FOLIC ACID
     Indication: Psoriatic arthropathy
  143. FOLIC ACID [Concomitant]
     Active Substance: FOLIC ACID
  144. FOLIC ACID [Concomitant]
     Active Substance: FOLIC ACID
  145. FOLIC ACID [Concomitant]
     Active Substance: FOLIC ACID
  146. FOLIC ACID [Concomitant]
     Active Substance: FOLIC ACID
  147. FOLIC ACID [Concomitant]
     Active Substance: FOLIC ACID
  148. FOLIC ACID [Concomitant]
     Active Substance: FOLIC ACID
  149. FOLIC ACID [Concomitant]
     Active Substance: FOLIC ACID
  150. FOLIC ACID [Concomitant]
     Active Substance: FOLIC ACID
  151. FOLIC ACID [Concomitant]
     Active Substance: FOLIC ACID
  152. FOLIC ACID [Concomitant]
     Active Substance: FOLIC ACID
  153. FOLIC ACID [Concomitant]
     Active Substance: FOLIC ACID
  154. FOLIC ACID [Concomitant]
     Active Substance: FOLIC ACID
  155. FOLIC ACID [Concomitant]
     Active Substance: FOLIC ACID
  156. FOLIC ACID [Concomitant]
     Active Substance: FOLIC ACID
  157. FOSAMAX [Concomitant]
     Active Substance: ALENDRONATE SODIUM
     Indication: Rheumatoid arthritis
  158. FOSAMAX [Concomitant]
     Active Substance: ALENDRONATE SODIUM
     Dosage: SUBDERMAL
  159. FOSAMAX [Concomitant]
     Active Substance: ALENDRONATE SODIUM
  160. FOSAMAX [Concomitant]
     Active Substance: ALENDRONATE SODIUM
  161. FOSAMAX [Concomitant]
     Active Substance: ALENDRONATE SODIUM
  162. FOSAMAX [Concomitant]
     Active Substance: ALENDRONATE SODIUM
  163. FOSAMAX [Concomitant]
     Active Substance: ALENDRONATE SODIUM
  164. GOLIMUMAB [Concomitant]
     Active Substance: GOLIMUMAB
     Indication: Rheumatoid arthritis
  165. HUMIRA [Concomitant]
     Active Substance: ADALIMUMAB
     Indication: Rheumatoid arthritis
     Dosage: SOLUTION SUBCUTANEOUS
  166. HYDROCORTISONE BUTYRATE [Concomitant]
     Active Substance: HYDROCORTISONE BUTYRATE
     Indication: Rheumatoid arthritis
  167. HYDROXYCHLOROQUINE [Concomitant]
     Active Substance: HYDROXYCHLOROQUINE
     Indication: Systemic lupus erythematosus
     Dosage: SUBDERMAL
  168. HYDROXYCHLOROQUINE [Concomitant]
     Active Substance: HYDROXYCHLOROQUINE
     Indication: Rheumatoid arthritis
  169. HYDROXYCHLOROQUINE [Concomitant]
     Active Substance: HYDROXYCHLOROQUINE
  170. HYDROXYCHLOROQUINE [Concomitant]
     Active Substance: HYDROXYCHLOROQUINE
  171. HYDROXYCHLOROQUINE [Concomitant]
     Active Substance: HYDROXYCHLOROQUINE
  172. HYDROXYCHLOROQUINE [Concomitant]
     Active Substance: HYDROXYCHLOROQUINE
  173. HYDROXYCHLOROQUINE [Concomitant]
     Active Substance: HYDROXYCHLOROQUINE
  174. HYDROXYCHLOROQUINE [Concomitant]
     Active Substance: HYDROXYCHLOROQUINE
  175. HYDROXYCHLOROQUINE [Concomitant]
     Active Substance: HYDROXYCHLOROQUINE
  176. HYDROXYCHLOROQUINE [Concomitant]
     Active Substance: HYDROXYCHLOROQUINE
  177. HYDROXYCHLOROQUINE [Concomitant]
     Active Substance: HYDROXYCHLOROQUINE
  178. HYDROXYCHLOROQUINE [Concomitant]
     Active Substance: HYDROXYCHLOROQUINE
  179. HYDROXYCHLOROQUINE [Concomitant]
     Active Substance: HYDROXYCHLOROQUINE
  180. HYDROXYCHLOROQUINE [Concomitant]
     Active Substance: HYDROXYCHLOROQUINE
  181. HYDROXYCHLOROQUINE [Concomitant]
     Active Substance: HYDROXYCHLOROQUINE
  182. HYDROXYCHLOROQUINE [Concomitant]
     Active Substance: HYDROXYCHLOROQUINE
  183. HYDROXYCHLOROQUINE [Concomitant]
     Active Substance: HYDROXYCHLOROQUINE
  184. HYDROXYCHLOROQUINE SULFATE [Concomitant]
     Active Substance: HYDROXYCHLOROQUINE SULFATE
     Indication: Systemic lupus erythematosus
  185. HYDROXYCHLOROQUINE SULFATE [Concomitant]
     Active Substance: HYDROXYCHLOROQUINE SULFATE
     Indication: Rheumatoid arthritis
  186. HYDROXYCHLOROQUINE SULFATE [Concomitant]
     Active Substance: HYDROXYCHLOROQUINE SULFATE
  187. HYDROXYCHLOROQUINE SULFATE [Concomitant]
     Active Substance: HYDROXYCHLOROQUINE SULFATE
  188. HYDROXYCHLOROQUINE SULFATE [Concomitant]
     Active Substance: HYDROXYCHLOROQUINE SULFATE
  189. HYDROXYCHLOROQUINE SULFATE [Concomitant]
     Active Substance: HYDROXYCHLOROQUINE SULFATE
     Dosage: OTHER
  190. HYDROXYCHLOROQUINE SULFATE [Concomitant]
     Active Substance: HYDROXYCHLOROQUINE SULFATE
  191. HYDROXYCHLOROQUINE SULFATE [Concomitant]
     Active Substance: HYDROXYCHLOROQUINE SULFATE
  192. HYDROXYCHLOROQUINE SULFATE [Concomitant]
     Active Substance: HYDROXYCHLOROQUINE SULFATE
  193. HYDROXYCHLOROQUINE SULFATE [Concomitant]
     Active Substance: HYDROXYCHLOROQUINE SULFATE
  194. HYDROXYCHLOROQUINE SULFATE [Concomitant]
     Active Substance: HYDROXYCHLOROQUINE SULFATE
  195. HYDROXYCHLOROQUINE SULFATE [Concomitant]
     Active Substance: HYDROXYCHLOROQUINE SULFATE
     Dosage: SUBDERMAL
  196. HYDROXYCHLOROQUINE SULFATE [Concomitant]
     Active Substance: HYDROXYCHLOROQUINE SULFATE
  197. HYDROXYCHLOROQUINE SULFATE [Concomitant]
     Active Substance: HYDROXYCHLOROQUINE SULFATE
  198. HYDROXYCHLOROQUINE SULFATE [Concomitant]
     Active Substance: HYDROXYCHLOROQUINE SULFATE
  199. HYRIMOZ [Concomitant]
     Active Substance: ADALIMUMAB-ADAZ
     Indication: Rheumatoid arthritis
  200. HYRIMOZ [Concomitant]
     Active Substance: ADALIMUMAB-ADAZ
     Indication: Psoriatic arthropathy
     Dosage: SUBDERMAL
  201. HYRIMOZ [Concomitant]
     Active Substance: ADALIMUMAB-ADAZ
  202. HYRIMOZ [Concomitant]
     Active Substance: ADALIMUMAB-ADAZ
     Dosage: SUBDERMAL
  203. IBUPROFEN [Concomitant]
     Active Substance: IBUPROFEN
     Indication: Product used for unknown indication
  204. INFLIXIMAB [Concomitant]
     Active Substance: INFLIXIMAB
     Indication: Rheumatoid arthritis
  205. INFLIXIMAB [Concomitant]
     Active Substance: INFLIXIMAB
     Indication: Psoriatic arthropathy
  206. INFLIXIMAB [Concomitant]
     Active Substance: INFLIXIMAB
     Indication: Colitis ulcerative
  207. INFLIXIMAB [Concomitant]
     Active Substance: INFLIXIMAB
  208. ISOPROPYL ALCOHOL [Concomitant]
     Active Substance: ISOPROPYL ALCOHOL
     Indication: Product used for unknown indication
  209. KEVZARA [Concomitant]
     Active Substance: SARILUMAB
     Indication: Rheumatoid arthritis
  210. KEVZARA [Concomitant]
     Active Substance: SARILUMAB
  211. LISINOPRIL [Concomitant]
     Active Substance: LISINOPRIL
     Indication: Product used for unknown indication
  212. LISINOPRIL [Concomitant]
     Active Substance: LISINOPRIL
  213. LISINOPRIL [Concomitant]
     Active Substance: LISINOPRIL
  214. LISINOPRIL [Concomitant]
     Active Substance: LISINOPRIL
  215. METHOTREXATE [Concomitant]
     Active Substance: METHOTREXATE
     Indication: Rheumatoid arthritis
     Dosage: SUBDERMAL
  216. METHOTREXATE [Concomitant]
     Active Substance: METHOTREXATE
  217. METHOTREXATE [Concomitant]
     Active Substance: METHOTREXATE
  218. METHOTREXATE [Concomitant]
     Active Substance: METHOTREXATE
  219. METHOTREXATE [Concomitant]
     Active Substance: METHOTREXATE
  220. METHOTREXATE [Concomitant]
     Active Substance: METHOTREXATE
  221. METHOTREXATE [Concomitant]
     Active Substance: METHOTREXATE
  222. METHOTREXATE [Concomitant]
     Active Substance: METHOTREXATE
  223. METHOTREXATE [Concomitant]
     Active Substance: METHOTREXATE
  224. METHOTREXATE [Concomitant]
     Active Substance: METHOTREXATE
  225. METHOTREXATE [Concomitant]
     Active Substance: METHOTREXATE
  226. METHOTREXATE [Concomitant]
     Active Substance: METHOTREXATE
  227. METHOTREXATE [Concomitant]
     Active Substance: METHOTREXATE
  228. METHOTREXATE [Concomitant]
     Active Substance: METHOTREXATE
  229. METHOTREXATE [Concomitant]
     Active Substance: METHOTREXATE
  230. METHOTREXATE [Concomitant]
     Active Substance: METHOTREXATE
  231. METHOTREXATE [Concomitant]
     Active Substance: METHOTREXATE
  232. METHOTREXATE [Concomitant]
     Active Substance: METHOTREXATE
  233. METHOTREXATE [Concomitant]
     Active Substance: METHOTREXATE
     Dosage: SUBDERMAL
  234. METHOTREXATE [Concomitant]
     Active Substance: METHOTREXATE
  235. METHOTREXATE [Concomitant]
     Active Substance: METHOTREXATE
  236. METHOTREXATE [Concomitant]
     Active Substance: METHOTREXATE
  237. METHOTREXATE [Concomitant]
     Active Substance: METHOTREXATE
  238. METHOTREXATE [Concomitant]
     Active Substance: METHOTREXATE
  239. METHOTREXATE [Concomitant]
     Active Substance: METHOTREXATE
  240. METHOTREXATE [Concomitant]
     Active Substance: METHOTREXATE
     Dosage: SUBDERMAL
  241. NAPROXEN SODIUM [Concomitant]
     Active Substance: NAPROXEN SODIUM
     Indication: Rheumatoid arthritis
  242. NAPROXEN SODIUM [Concomitant]
     Active Substance: NAPROXEN SODIUM
     Indication: Headache
  243. NAPROXEN SODIUM [Concomitant]
     Active Substance: NAPROXEN SODIUM
  244. NAPROXEN SODIUM [Concomitant]
     Active Substance: NAPROXEN SODIUM
  245. OTEZLA [Concomitant]
     Active Substance: APREMILAST
     Indication: Rheumatoid arthritis
  246. OXYCODONE [Concomitant]
     Active Substance: OXYCODONE
     Indication: Product used for unknown indication
  247. OXYCODONE [Concomitant]
     Active Substance: OXYCODONE
  248. OXYCODONE [Concomitant]
     Active Substance: OXYCODONE
  249. OXYCODONE TEREPHTHALATE [Concomitant]
     Active Substance: OXYCODONE TEREPHTHALATE
     Indication: Rheumatoid arthritis
  250. PERIOGARD [Concomitant]
     Active Substance: CHLORHEXIDINE GLUCONATE
     Indication: Product used for unknown indication
  251. PERIOGARD [Concomitant]
     Active Substance: CHLORHEXIDINE GLUCONATE
  252. PHTHALYLSULFATHIAZOLE [Concomitant]
     Active Substance: PHTHALYLSULFATHIAZOLE
     Indication: Rheumatoid arthritis
     Dosage: SUBDERMAL
  253. PHTHALYLSULFATHIAZOLE [Concomitant]
     Active Substance: PHTHALYLSULFATHIAZOLE
  254. PHTHALYLSULFATHIAZOLE [Concomitant]
     Active Substance: PHTHALYLSULFATHIAZOLE
  255. PHTHALYLSULFATHIAZOLE [Concomitant]
     Active Substance: PHTHALYLSULFATHIAZOLE
  256. PHTHALYLSULFATHIAZOLE [Concomitant]
     Active Substance: PHTHALYLSULFATHIAZOLE
  257. PHTHALYLSULFATHIAZOLE [Concomitant]
     Active Substance: PHTHALYLSULFATHIAZOLE
  258. PHTHALYLSULFATHIAZOLE [Concomitant]
     Active Substance: PHTHALYLSULFATHIAZOLE
  259. PHTHALYLSULFATHIAZOLE [Concomitant]
     Active Substance: PHTHALYLSULFATHIAZOLE
  260. PHTHALYLSULFATHIAZOLE [Concomitant]
     Active Substance: PHTHALYLSULFATHIAZOLE
  261. PHTHALYLSULFATHIAZOLE [Concomitant]
     Active Substance: PHTHALYLSULFATHIAZOLE
  262. PHTHALYLSULFATHIAZOLE [Concomitant]
     Active Substance: PHTHALYLSULFATHIAZOLE
  263. PHTHALYLSULFATHIAZOLE [Concomitant]
     Active Substance: PHTHALYLSULFATHIAZOLE
  264. PHTHALYLSULFATHIAZOLE [Concomitant]
     Active Substance: PHTHALYLSULFATHIAZOLE
  265. PHTHALYLSULFATHIAZOLE [Concomitant]
     Active Substance: PHTHALYLSULFATHIAZOLE
  266. PHTHALYLSULFATHIAZOLE [Concomitant]
     Active Substance: PHTHALYLSULFATHIAZOLE
  267. PHTHALYLSULFATHIAZOLE [Concomitant]
     Active Substance: PHTHALYLSULFATHIAZOLE
  268. HYDROXYCHLOROQUINE DIPHOSPHATE [Concomitant]
     Active Substance: HYDROXYCHLOROQUINE DIPHOSPHATE
     Indication: Rheumatoid arthritis
  269. HYDROXYCHLOROQUINE DIPHOSPHATE [Concomitant]
     Active Substance: HYDROXYCHLOROQUINE DIPHOSPHATE
     Indication: Condition aggravated
  270. PREDNISOLONE ACETATE [Concomitant]
     Active Substance: PREDNISOLONE ACETATE
     Indication: Product used for unknown indication
  271. PREDNISONE [Concomitant]
     Active Substance: PREDNISONE
     Indication: Rheumatoid arthritis
  272. PREDNISONE [Concomitant]
     Active Substance: PREDNISONE
     Indication: Psoriatic arthropathy
  273. PREDNISONE [Concomitant]
     Active Substance: PREDNISONE
     Indication: Condition aggravated
  274. PREDNISONE [Concomitant]
     Active Substance: PREDNISONE
     Indication: Arthralgia
  275. PREDNISONE [Concomitant]
     Active Substance: PREDNISONE
  276. PREDNISONE [Concomitant]
     Active Substance: PREDNISONE
  277. PREDNISONE [Concomitant]
     Active Substance: PREDNISONE
  278. PREDNISONE [Concomitant]
     Active Substance: PREDNISONE
  279. PREDNISONE [Concomitant]
     Active Substance: PREDNISONE
  280. PREDNISONE [Concomitant]
     Active Substance: PREDNISONE
  281. PREDNISONE [Concomitant]
     Active Substance: PREDNISONE
  282. PREDNISONE [Concomitant]
     Active Substance: PREDNISONE
  283. PREDNISONE [Concomitant]
     Active Substance: PREDNISONE
  284. PREDNISONE [Concomitant]
     Active Substance: PREDNISONE
  285. PREGABALIN [Concomitant]
     Active Substance: PREGABALIN
     Indication: Rheumatoid arthritis
  286. PSEUDOEPHEDRINE HYDROCHLORIDE [Concomitant]
     Active Substance: PSEUDOEPHEDRINE HYDROCHLORIDE
     Indication: Rheumatoid arthritis
  287. PSEUDOEPHEDRINE HYDROCHLORIDE [Concomitant]
     Active Substance: PSEUDOEPHEDRINE HYDROCHLORIDE
  288. PSEUDOEPHEDRINE HYDROCHLORIDE [Concomitant]
     Active Substance: PSEUDOEPHEDRINE HYDROCHLORIDE
  289. RAMIPRIL [Concomitant]
     Active Substance: RAMIPRIL
     Indication: Product used for unknown indication
  290. RAMIPRIL [Concomitant]
     Active Substance: RAMIPRIL
  291. CETIRIZINE HYDROCHLORIDE\PSEUDOEPHEDRINE HYDROCHLORIDE [Concomitant]
     Active Substance: CETIRIZINE HYDROCHLORIDE\PSEUDOEPHEDRINE HYDROCHLORIDE
     Indication: Rheumatoid arthritis
  292. CETIRIZINE HYDROCHLORIDE\PSEUDOEPHEDRINE HYDROCHLORIDE [Concomitant]
     Active Substance: CETIRIZINE HYDROCHLORIDE\PSEUDOEPHEDRINE HYDROCHLORIDE
     Indication: Off label use
  293. CETIRIZINE HYDROCHLORIDE\PSEUDOEPHEDRINE HYDROCHLORIDE [Concomitant]
     Active Substance: CETIRIZINE HYDROCHLORIDE\PSEUDOEPHEDRINE HYDROCHLORIDE
  294. CETIRIZINE HYDROCHLORIDE\PSEUDOEPHEDRINE HYDROCHLORIDE [Concomitant]
     Active Substance: CETIRIZINE HYDROCHLORIDE\PSEUDOEPHEDRINE HYDROCHLORIDE
  295. CETIRIZINE HYDROCHLORIDE\PSEUDOEPHEDRINE HYDROCHLORIDE [Concomitant]
     Active Substance: CETIRIZINE HYDROCHLORIDE\PSEUDOEPHEDRINE HYDROCHLORIDE
  296. REMICADE [Concomitant]
     Active Substance: INFLIXIMAB
     Indication: Rheumatoid arthritis
  297. REMICADE [Concomitant]
     Active Substance: INFLIXIMAB
     Indication: Psoriatic arthropathy
  298. REMICADE [Concomitant]
     Active Substance: INFLIXIMAB
     Indication: Psoriasis
  299. REMICADE [Concomitant]
     Active Substance: INFLIXIMAB
     Indication: Crohn^s disease
  300. REMICADE [Concomitant]
     Active Substance: INFLIXIMAB
     Indication: Ankylosing spondylitis
  301. REMICADE [Concomitant]
     Active Substance: INFLIXIMAB
  302. REMICADE [Concomitant]
     Active Substance: INFLIXIMAB
  303. REMICADE [Concomitant]
     Active Substance: INFLIXIMAB
  304. REMICADE [Concomitant]
     Active Substance: INFLIXIMAB
  305. REMICADE [Concomitant]
     Active Substance: INFLIXIMAB
  306. RITUXIMAB [Concomitant]
     Active Substance: RITUXIMAB
     Indication: Rheumatoid arthritis
  307. RITUXIMAB [Concomitant]
     Active Substance: RITUXIMAB
  308. RITUXIMAB [Concomitant]
     Active Substance: RITUXIMAB
  309. RITUXIMAB [Concomitant]
     Active Substance: RITUXIMAB
  310. RITUXIMAB [Concomitant]
     Active Substance: RITUXIMAB
     Dosage: SUBDERMAL
  311. RITUXIMAB [Concomitant]
     Active Substance: RITUXIMAB
  312. RITUXIMAB [Concomitant]
     Active Substance: RITUXIMAB
  313. RITUXIMAB [Concomitant]
     Active Substance: RITUXIMAB
  314. RITUXIMAB [Concomitant]
     Active Substance: RITUXIMAB
  315. HYALURONIDASE (HUMAN RECOMBINANT)\RITUXIMAB [Concomitant]
     Active Substance: HYALURONIDASE (HUMAN RECOMBINANT)\RITUXIMAB
     Indication: Rheumatoid arthritis
  316. DIETARY SUPPLEMENT\HERBALS [Concomitant]
     Active Substance: DIETARY SUPPLEMENT\HERBALS
     Indication: Product used for unknown indication
  317. DIETARY SUPPLEMENT\HERBALS [Concomitant]
     Active Substance: DIETARY SUPPLEMENT\HERBALS
     Dosage: SUBDERMAL
  318. DIETARY SUPPLEMENT\HERBALS [Concomitant]
     Active Substance: DIETARY SUPPLEMENT\HERBALS
     Dosage: SUBDERMAL
  319. SULFASALAZINE [Concomitant]
     Active Substance: SULFASALAZINE
     Indication: Product used for unknown indication
  320. APREMILAST [Concomitant]
     Active Substance: APREMILAST
     Indication: Product used for unknown indication
  321. APREMILAST [Concomitant]
     Active Substance: APREMILAST
  322. APREMILAST [Concomitant]
     Active Substance: APREMILAST
  323. LEFLUNOMIDE [Concomitant]
     Active Substance: LEFLUNOMIDE
     Indication: Rheumatoid arthritis
  324. LEFLUNOMIDE [Concomitant]
     Active Substance: LEFLUNOMIDE
  325. LEFLUNOMIDE [Concomitant]
     Active Substance: LEFLUNOMIDE
  326. LEFLUNOMIDE [Concomitant]
     Active Substance: LEFLUNOMIDE
  327. LEFLUNOMIDE [Concomitant]
     Active Substance: LEFLUNOMIDE
  328. LEFLUNOMIDE [Concomitant]
     Active Substance: LEFLUNOMIDE
  329. LEFLUNOMIDE [Concomitant]
     Active Substance: LEFLUNOMIDE
  330. LISINOPRIL [Concomitant]
     Active Substance: LISINOPRIL
     Indication: Product used for unknown indication
  331. MYCOPHENOLATE MOFETIL [Concomitant]
     Active Substance: MYCOPHENOLATE MOFETIL
     Indication: Rheumatoid arthritis
  332. MYCOPHENOLATE MOFETIL [Concomitant]
     Active Substance: MYCOPHENOLATE MOFETIL
  333. QUETIAPINE FUMARATE [Concomitant]
     Active Substance: QUETIAPINE FUMARATE
     Indication: Product used for unknown indication
  334. QUETIAPINE FUMARATE [Concomitant]
     Active Substance: QUETIAPINE FUMARATE
  335. QUETIAPINE FUMARATE [Concomitant]
     Active Substance: QUETIAPINE FUMARATE
  336. SIMPONI [Concomitant]
     Active Substance: GOLIMUMAB
     Indication: Rheumatoid arthritis
     Dosage: SOLUTION?SUBCUTANEOUS
  337. SIMPONI [Concomitant]
     Active Substance: GOLIMUMAB
     Indication: Psoriatic arthropathy
  338. STELARA [Concomitant]
     Active Substance: USTEKINUMAB
     Indication: Rheumatoid arthritis
     Dosage: SOLUTION?SUBCUTANEOUS
  339. STELARA [Concomitant]
     Active Substance: USTEKINUMAB
     Indication: Psoriatic arthropathy
  340. STELARA [Concomitant]
     Active Substance: USTEKINUMAB
     Dosage: SUBDERMAL
  341. STELARA [Concomitant]
     Active Substance: USTEKINUMAB
     Dosage: SUBDERMAL
  342. STELARA [Concomitant]
     Active Substance: USTEKINUMAB
  343. STELARA [Concomitant]
     Active Substance: USTEKINUMAB
  344. SULFASALAZINE [Concomitant]
     Active Substance: SULFASALAZINE
     Indication: Product used for unknown indication
  345. SULFASALAZINE [Concomitant]
     Active Substance: SULFASALAZINE
  346. SULFASALAZINE [Concomitant]
     Active Substance: SULFASALAZINE
  347. SULFASALAZINE [Concomitant]
     Active Substance: SULFASALAZINE
  348. SULFASALAZINE [Concomitant]
     Active Substance: SULFASALAZINE
  349. SULFASALAZINE [Concomitant]
     Active Substance: SULFASALAZINE
  350. SULFASALAZINE [Concomitant]
     Active Substance: SULFASALAZINE
  351. SULFASALAZINE [Concomitant]
     Active Substance: SULFASALAZINE
  352. SULFASALAZINE [Concomitant]
     Active Substance: SULFASALAZINE
     Dosage: SUBDERMAL
  353. SULFASALAZINE [Concomitant]
     Active Substance: SULFASALAZINE
     Dosage: SUBDERMAL
  354. SULFASALAZINE [Concomitant]
     Active Substance: SULFASALAZINE
  355. SULFASALAZINE [Concomitant]
     Active Substance: SULFASALAZINE
  356. SULFASALAZINE [Concomitant]
     Active Substance: SULFASALAZINE
  357. SULFASALAZINE [Concomitant]
     Active Substance: SULFASALAZINE
  358. SULFASALAZINE [Concomitant]
     Active Substance: SULFASALAZINE
  359. SULFASALAZINE [Concomitant]
     Active Substance: SULFASALAZINE
  360. SULFASALAZINE [Concomitant]
     Active Substance: SULFASALAZINE
  361. SULFASALAZINE [Concomitant]
     Active Substance: SULFASALAZINE
  362. SULFASALAZINE [Concomitant]
     Active Substance: SULFASALAZINE
  363. SULFASALAZINE [Concomitant]
     Active Substance: SULFASALAZINE
  364. SULFASALAZINE [Concomitant]
     Active Substance: SULFASALAZINE
  365. SULFASALAZINE [Concomitant]
     Active Substance: SULFASALAZINE
  366. SULFASALAZINE [Concomitant]
     Active Substance: SULFASALAZINE
  367. SULFASALAZINE [Concomitant]
     Active Substance: SULFASALAZINE
  368. SULFASALAZINE [Concomitant]
     Active Substance: SULFASALAZINE
  369. SULFASALAZINE [Concomitant]
     Active Substance: SULFASALAZINE
  370. SULFASALAZINE [Concomitant]
     Active Substance: SULFASALAZINE
  371. SULFASALAZINE [Concomitant]
     Active Substance: SULFASALAZINE
  372. SULFASALAZINE [Concomitant]
     Active Substance: SULFASALAZINE
  373. SULFASALAZINE [Concomitant]
     Active Substance: SULFASALAZINE
  374. SULFASALAZINE [Concomitant]
     Active Substance: SULFASALAZINE
  375. SULFASALAZINE [Concomitant]
     Active Substance: SULFASALAZINE
  376. SULFASALAZINE [Concomitant]
     Active Substance: SULFASALAZINE
  377. SULFASALAZINE [Concomitant]
     Active Substance: SULFASALAZINE
  378. SULFASALAZINE [Concomitant]
     Active Substance: SULFASALAZINE
     Dosage: SUBDERMAL
  379. SULFASALAZINE [Concomitant]
     Active Substance: SULFASALAZINE
  380. TOCILIZUMAB [Concomitant]
     Active Substance: TOCILIZUMAB
     Indication: Rheumatoid arthritis
  381. TOCILIZUMAB [Concomitant]
     Active Substance: TOCILIZUMAB
  382. TOCILIZUMAB [Concomitant]
     Active Substance: TOCILIZUMAB
     Dosage: SUBDERMAL
  383. TOCILIZUMAB [Concomitant]
     Active Substance: TOCILIZUMAB
     Dosage: SUBDERMAL
  384. TOCILIZUMAB [Concomitant]
     Active Substance: TOCILIZUMAB
  385. TOCILIZUMAB [Concomitant]
     Active Substance: TOCILIZUMAB
     Dosage: SUBDERMAL
  386. TOCILIZUMAB [Concomitant]
     Active Substance: TOCILIZUMAB
  387. TOCILIZUMAB [Concomitant]
     Active Substance: TOCILIZUMAB
     Dosage: SUBDERMAL
  388. TOCILIZUMAB [Concomitant]
     Active Substance: TOCILIZUMAB
  389. TOCILIZUMAB [Concomitant]
     Active Substance: TOCILIZUMAB
  390. TOCILIZUMAB [Concomitant]
     Active Substance: TOCILIZUMAB
  391. TOCILIZUMAB [Concomitant]
     Active Substance: TOCILIZUMAB
  392. TOCILIZUMAB [Concomitant]
     Active Substance: TOCILIZUMAB
  393. TOCILIZUMAB [Concomitant]
     Active Substance: TOCILIZUMAB
     Dosage: SUBDERMAL
  394. TOFACITINIB CITRATE [Concomitant]
     Active Substance: TOFACITINIB CITRATE
     Indication: Rheumatoid arthritis
  395. USTEKINUMAB [Concomitant]
     Active Substance: USTEKINUMAB
     Indication: Rheumatoid arthritis
     Dosage: SUBDERMAL
  396. USTEKINUMAB [Concomitant]
     Active Substance: USTEKINUMAB
  397. VITAMIN D3 [Concomitant]
     Active Substance: CHOLECALCIFEROL
     Indication: Rheumatoid arthritis
  398. DICLOFENAC [Concomitant]
     Active Substance: DICLOFENAC
     Indication: Rheumatoid arthritis
  399. DICLOFENAC [Concomitant]
     Active Substance: DICLOFENAC
     Indication: Psoriatic arthropathy
  400. DICLOFENAC [Concomitant]
     Active Substance: DICLOFENAC
  401. DICLOFENAC [Concomitant]
     Active Substance: DICLOFENAC
  402. DICLOFENAC [Concomitant]
     Active Substance: DICLOFENAC
  403. DICLOFENAC [Concomitant]
     Active Substance: DICLOFENAC
  404. DICLOFENAC [Concomitant]
     Active Substance: DICLOFENAC
  405. DICLOFENAC [Concomitant]
     Active Substance: DICLOFENAC
  406. DICLOFENAC [Concomitant]
     Active Substance: DICLOFENAC
  407. DICLOFENAC [Concomitant]
     Active Substance: DICLOFENAC
  408. DICLOFENAC [Concomitant]
     Active Substance: DICLOFENAC
     Dosage: SUBDERMAL
  409. DICLOFENAC [Concomitant]
     Active Substance: DICLOFENAC
  410. DICLOFENAC [Concomitant]
     Active Substance: DICLOFENAC
  411. PREDNISONE [Concomitant]
     Active Substance: PREDNISONE
     Indication: Rheumatoid arthritis
  412. PREDNISONE [Concomitant]
     Active Substance: PREDNISONE
  413. XELJANZ [Concomitant]
     Active Substance: TOFACITINIB CITRATE
     Indication: Rheumatoid arthritis
  414. XELJANZ [Concomitant]
     Active Substance: TOFACITINIB CITRATE
  415. XELJANZ [Concomitant]
     Active Substance: TOFACITINIB CITRATE
  416. XELJANZ [Concomitant]
     Active Substance: TOFACITINIB CITRATE
  417. XELJANZ [Concomitant]
     Active Substance: TOFACITINIB CITRATE
  418. XELJANZ [Concomitant]
     Active Substance: TOFACITINIB CITRATE
  419. XELJANZ [Concomitant]
     Active Substance: TOFACITINIB CITRATE
  420. XELJANZ [Concomitant]
     Active Substance: TOFACITINIB CITRATE
  421. XELJANZ [Concomitant]
     Active Substance: TOFACITINIB CITRATE
  422. XELJANZ [Concomitant]
     Active Substance: TOFACITINIB CITRATE
  423. XELJANZ [Concomitant]
     Active Substance: TOFACITINIB CITRATE
  424. XELJANZ [Concomitant]
     Active Substance: TOFACITINIB CITRATE
  425. PREDNISOLONE [Concomitant]
     Active Substance: PREDNISOLONE
     Indication: Product used for unknown indication

REACTIONS (1)
  - Death [Fatal]
